FAERS Safety Report 4301494-2 (Version None)
Quarter: 2004Q1

REPORT INFORMATION
  Report Type: 
  Country: None (occurrence: None)
  Receive Date: 20040219
  Receipt Date: 20040206
  Transmission Date: 20041129
  Serious: Yes (Life-Threatening, Hospitalization, Other)
  Sender: FDA-Public Use
  Company Number: ZONI001320

PATIENT
  Age: 40 Year
  Sex: Female
  Weight: 54.4316 kg

DRUGS (7)
  1. ZONEGRAN [Suspect]
     Indication: CONVULSION
     Dosage: 0 MG DAILY ORAL
     Route: 048
     Dates: start: 20040205, end: 20040205
  2. TOPAMAX [Concomitant]
  3. EFFEXOR [Concomitant]
  4. GEODON [Concomitant]
  5. KLONOPIN [Concomitant]
  6. FLEXERIL [Concomitant]
  7. PERCOCET (PARACETAMOL/OXYCODONE) [Concomitant]

REACTIONS (2)
  - BRADYCARDIA [None]
  - INTENTIONAL OVERDOSE [None]
